FAERS Safety Report 4502415-X (Version None)
Quarter: 2004Q4

REPORT INFORMATION
  Report Type: 
  Country: None (occurrence: None)
  Receive Date: 20041116
  Receipt Date: 20040625
  Transmission Date: 20050328
  Serious: Yes (Death)
  Sender: FDA-Public Use
  Company Number: PHNU2004DE02289

PATIENT
  Age: 82 Year
  Sex: Female

DRUGS (2)
  1. TEGRETOL [Suspect]
     Indication: CONVULSION
     Dosage: 300 MG, TID
     Route: 065
     Dates: start: 20040617
  2. FEMARA [Concomitant]
     Dates: start: 20040401

REACTIONS (8)
  - BREAST CANCER METASTATIC [None]
  - DISEASE PROGRESSION [None]
  - ERYTHEMA [None]
  - LYMPHADENOPATHY [None]
  - MUSCLE TWITCHING [None]
  - PAIN IN EXTREMITY [None]
  - PETIT MAL EPILEPSY [None]
  - RASH [None]
